FAERS Safety Report 6163635-4 (Version None)
Quarter: 2009Q2

REPORT INFORMATION
  Report Type: 
  Country: None (occurrence: None)
  Receive Date: 20090422
  Receipt Date: 20090420
  Transmission Date: 20091009
  Serious: Yes (Other)
  Sender: FDA-Public Use
  Company Number: US-PFIZER INC-2009151586

PATIENT
  Sex: Female

DRUGS (4)
  1. LIPITOR [Suspect]
  2. CRESTOR [Suspect]
  3. PRAVACHOL [Suspect]
  4. ATENOLOL [Concomitant]
     Indication: ARRHYTHMIA
     Dosage: UNK

REACTIONS (1)
  - SYSTEMIC LUPUS ERYTHEMATOSUS [None]
